FAERS Safety Report 7877211-6 (Version None)
Quarter: 2011Q4

REPORT INFORMATION
  Report Type: 
  Country: None (occurrence: None)
  Receive Date: 20111031
  Receipt Date: 20111028
  Transmission Date: 20120403
  Serious: Yes (Death, Other)
  Sender: FDA-Public Use
  Company Number: PHFR2010GB02075

PATIENT
  Sex: Female

DRUGS (8)
  1. CLOZARIL [Suspect]
     Indication: SCHIZOPHRENIA
     Dosage: 600 MG/DAY
     Route: 048
     Dates: start: 20030101, end: 20041001
  2. PAROXETINE HCL [Concomitant]
     Indication: DEPRESSION
     Dosage: 30 MG/DAY
     Route: 048
  3. AMISULPRIDE [Suspect]
     Dosage: UNK
     Route: 048
  4. CLOZARIL [Suspect]
     Route: 048
     Dates: start: 20050207
  5. RAMIPRIL [Concomitant]
     Indication: HYPERTENSION
     Dosage: 10 MG/DAY
     Route: 048
  6. TEMAZEPAM [Concomitant]
     Indication: INSOMNIA
     Dosage: 10 MG/DAY
     Route: 048
  7. AMISULPRIDE [Suspect]
     Indication: SCHIZOPHRENIA
     Dosage: 200 MG/DAY
     Route: 048
     Dates: end: 20100801
  8. LAMOTRIGINE [Suspect]
     Dosage: 50 MG/DAY
     Dates: end: 20100801

REACTIONS (10)
  - NEOPLASM MALIGNANT [None]
  - BREAST CANCER [None]
  - BREAST ABSCESS [None]
  - HAEMOGLOBIN DECREASED [None]
  - WHITE BLOOD CELL COUNT INCREASED [None]
  - NEUTROPHIL COUNT INCREASED [None]
  - ABSCESS [None]
  - METASTASES TO SPINE [None]
  - MENTAL IMPAIRMENT [None]
  - PLATELET COUNT DECREASED [None]
